FAERS Safety Report 6470530-X (Version None)
Quarter: 2009Q4

REPORT INFORMATION
  Report Type: 
  Country: None (occurrence: None)
  Receive Date: 20091202
  Receipt Date: 20091202
  Transmission Date: 20100525
  Serious: Yes (Hospitalization)
  Sender: FDA-Public Use
  Company Number: None

PATIENT
  Age: 50 Year
  Sex: Male
  Weight: 104.3273 kg

DRUGS (1)
  1. SORAFENIB 200MG BAYER [Suspect]
     Indication: SARCOMA
     Dosage: 200 MG BID PO
     Route: 048
     Dates: start: 20090824, end: 20090927

REACTIONS (1)
  - POST PROCEDURAL INFECTION [None]
